FAERS Safety Report 5633172-1 (Version None)
Quarter: 2008Q1

REPORT INFORMATION
  Report Type: 
  Country: None (occurrence: None)
  Receive Date: 20080221
  Receipt Date: 20080214
  Transmission Date: 20080703
  Serious: Yes (Congenital Anomaly)
  Sender: FDA-Public Use
  Company Number: BR-AVENTIS-200714597GDDC

PATIENT
  Age: 1 Month
  Sex: Female
  Weight: 4.4 kg

DRUGS (6)
  1. LANTUS [Suspect]
     Route: 015
     Dates: start: 20070513, end: 20080101
  2. OPTIPEN (INSULIN PUMP) [Suspect]
     Dates: start: 20070513, end: 20080101
  3. ETHAMBUTOL HYDROCHLORIDE [Suspect]
     Dosage: DOSE QUANTITY: 3
     Route: 064
     Dates: start: 20061201
  4. ISONIAZID [Suspect]
     Dosage: DOSE QUANTITY: 3
     Route: 064
     Dates: start: 20061201
  5. FOLIC ACID [Suspect]
     Dosage: DOSE QUANTITY: 1
     Route: 064
     Dates: start: 20070101
  6. NPH ILETIN II [Suspect]
     Route: 015
     Dates: start: 19970101, end: 20070101

REACTIONS (3)
  - DRUG EXPOSURE DURING PREGNANCY [None]
  - LARGE FOR DATES BABY [None]
  - SOLITARY KIDNEY [None]
